FAERS Safety Report 7089200-2 (Version None)
Quarter: 2010Q4

REPORT INFORMATION
  Report Type: 
  Country: None (occurrence: None)
  Receive Date: 20101029
  Receipt Date: 20101020
  Transmission Date: 20110411
  Serious: Yes (Other)
  Sender: FDA-Public Use
  Company Number: 2010US004407

PATIENT
  Sex: Female

DRUGS (1)
  1. AMBISOME [Suspect]
     Indication: CANDIDA SEPSIS

REACTIONS (1)
  - DEAFNESS BILATERAL [None]
